FAERS Safety Report 16119548 (Version 1)
Quarter: 2019Q1

REPORT INFORMATION
  Report Type: Spontaneous
  Country: IT (occurrence: IT)
  Receive Date: 20190326
  Receipt Date: 20190326
  Transmission Date: 20190418
  Serious: Yes (Hospitalization, Other)
  Sender: FDA-Public Use
  Company Number: PHHY2019IT066942

PATIENT
  Sex: Male

DRUGS (3)
  1. PARACETAMOL [Suspect]
     Active Substance: ACETAMINOPHEN
     Indication: PRODUCT USED FOR UNKNOWN INDICATION
     Dosage: 16 DF, TOTAL
     Route: 048
     Dates: start: 20190210, end: 20190210
  2. PARACETAMOL [Suspect]
     Active Substance: ACETAMINOPHEN
     Dosage: 20 DF, UNK
     Route: 048
     Dates: start: 20190210
  3. LEVOFLOXACIN. [Suspect]
     Active Substance: LEVOFLOXACIN
     Indication: PRODUCT USED FOR UNKNOWN INDICATION
     Dosage: 5 DF, TOTAL
     Route: 048
     Dates: start: 20190210

REACTIONS (4)
  - Vomiting [Recovered/Resolved]
  - Sopor [Recovered/Resolved]
  - Drug abuse [Unknown]
  - Agitation [Recovered/Resolved]

NARRATIVE: CASE EVENT DATE: 20190210
